FAERS Safety Report 5505789-6 (Version None)
Quarter: 2007Q4

REPORT INFORMATION
  Report Type: 
  Country: None (occurrence: None)
  Receive Date: 20071102
  Receipt Date: 20071029
  Transmission Date: 20080405
  Serious: Yes (Other)
  Sender: FDA-Public Use
  Company Number: US-ROXANE LABORATORIES, INC-2007-BP-23481RO

PATIENT
  Age: 12 Year
  Sex: Female

DRUGS (9)
  1. PREDNISONE [Suspect]
  2. AZATHIOPRINE [Suspect]
  3. FUROSEMIDE [Suspect]
  4. RANITIDINE [Suspect]
  5. CYCLOSPORINE [Suspect]
  6. NIFEDIPINE [Suspect]
  7. TRIMETHOPRIM + SULFAMETHOXAZOLE [Suspect]
  8. STEROID INHALER [Suspect]
  9. IMMUNE GLOBULIN INTRAVENOUS (HUMAN) [Suspect]
     Route: 042

REACTIONS (1)
  - POLYP [None]
